FAERS Safety Report 11860533 (Version 1)
Quarter: 2015Q4

REPORT INFORMATION
  Report Type: Spontaneous
  Country: PE (occurrence: PE)
  Receive Date: 20151222
  Receipt Date: 20151222
  Transmission Date: 20160305
  Serious: Yes (Hospitalization)
  Sender: FDA-Public Use
  Company Number: PE-DSJP-DSU-2015-139330

PATIENT

DRUGS (1)
  1. OLMESARTAN AND AMLODIPINE [Suspect]
     Active Substance: AMLODIPINE BESYLATE\OLMESARTAN MEDOXOMIL
     Indication: PRODUCT USED FOR UNKNOWN INDICATION
     Dosage: 40/10 MG, QD
     Route: 048
     Dates: start: 20150901, end: 201510

REACTIONS (3)
  - Pancreatic disorder [Unknown]
  - Hypertension [Unknown]
  - Haemodialysis [Unknown]

NARRATIVE: CASE EVENT DATE: 201510
